FAERS Safety Report 9624992 (Version 1)
Quarter: 2013Q4

REPORT INFORMATION
  Report Type: Spontaneous
  Country: PL (occurrence: PL)
  Receive Date: 20131016
  Receipt Date: 20131016
  Transmission Date: 20140711
  Serious: Yes (Other)
  Sender: FDA-Public Use
  Company Number: PHHY2013PL112567

PATIENT
  Age: 59 Year
  Sex: Female
  Weight: 60 kg

DRUGS (1)
  1. KETONAL FORTE [Suspect]
     Indication: SINUS HEADACHE
     Dosage: 100 MG, UNK
     Route: 048
     Dates: start: 20130408, end: 20130408

REACTIONS (6)
  - Anxiety [Unknown]
  - Heart rate increased [Unknown]
  - Flushing [Unknown]
  - Erythema [Unknown]
  - Vision blurred [Unknown]
  - Blood pressure increased [Unknown]
